FAERS Safety Report 4986294-2 (Version None)
Quarter: 2006Q2

REPORT INFORMATION
  Report Type: 
  Country: None (occurrence: None)
  Receive Date: 20060428
  Receipt Date: 20060420
  Transmission Date: 20061013
  Serious: Yes (Life-Threatening, Hospitalization, Disabling, Other)
  Sender: FDA-Public Use
  Company Number: GB-MERCK-0604GBR00116

PATIENT
  Age: 74 Year
  Sex: Female

DRUGS (2)
  1. ZOCOR [Suspect]
     Route: 048
     Dates: start: 20060330, end: 20060331
  2. ISOFLURANE [Suspect]
     Route: 042
     Dates: start: 20060328

REACTIONS (2)
  - HEPATIC FAILURE [None]
  - LIVER FUNCTION TEST ABNORMAL [None]
